FAERS Safety Report 5952338-4 (Version None)
Quarter: 2008Q4

REPORT INFORMATION
  Report Type: 
  Country: None (occurrence: None)
  Receive Date: 20081113
  Receipt Date: 20081103
  Transmission Date: 20090506
  Serious: Yes (Hospitalization, Other)
  Sender: FDA-Public Use
  Company Number: US-PFIZER INC-2008094675

PATIENT
  Age: 1 Month
  Sex: Female

DRUGS (3)
  1. PHENYTOIN [Suspect]
  2. AMPICILLIN [Interacting]
  3. CEFOTAXIME SODIUM [Interacting]

REACTIONS (8)
  - DEPRESSED LEVEL OF CONSCIOUSNESS [None]
  - DRUG INTERACTION [None]
  - DRUG TOXICITY [None]
  - HYPOTHERMIA [None]
  - ILEUS [None]
  - INCORRECT DOSE ADMINISTERED [None]
  - LETHARGY [None]
  - STRABISMUS [None]
